FAERS Safety Report 10254851 (Version 1)
Quarter: 2014Q2

REPORT INFORMATION
  Report Type: Spontaneous
  Country: GB (occurrence: GB)
  Receive Date: 20140624
  Receipt Date: 20140624
  Transmission Date: 20141212
  Serious: Yes (Life-Threatening)
  Sender: FDA-Public Use
  Company Number: GB-MYLANLABS-2014S1013890

PATIENT
  Age: 53 Year
  Sex: Male
  Weight: 100 kg

DRUGS (2)
  1. ATENOLOL [Suspect]
     Indication: HYPERTENSION
     Route: 048
     Dates: end: 20110612
  2. ARGININE [Concomitant]

REACTIONS (5)
  - Loss of libido [Recovered/Resolved]
  - Heart rate decreased [Recovered/Resolved]
  - Blood pressure ambulatory increased [Recovering/Resolving]
  - Blood glucose increased [Recovered/Resolved]
  - High density lipoprotein decreased [Unknown]
